FAERS Safety Report 8501603-5 (Version None)
Quarter: 2012Q3

REPORT INFORMATION
  Report Type: 
  Country: None (occurrence: None)
  Receive Date: 20120710
  Receipt Date: 20120626
  Transmission Date: 20120928
  Serious: Yes (Hospitalization)
  Sender: FDA-Public Use
  Company Number: US-ROCHE-1082263

PATIENT
  Sex: Female

DRUGS (9)
  1. XYZAL [Concomitant]
  2. COMBIVENT [Concomitant]
  3. XOLAIR [Suspect]
     Indication: ASTHMA
     Dosage: TWO INJECTIONS
     Route: 058
     Dates: start: 20080305, end: 20100101
  4. HYDROCHLOROTHIAZIDE [Concomitant]
  5. XOLAIR [Suspect]
     Dosage: TWO INJECTIONS
     Route: 030
     Dates: start: 20110601
  6. DULERA [Concomitant]
  7. TOPAMAX [Concomitant]
  8. SINGULAIR [Concomitant]
  9. LAMICTAL [Concomitant]

REACTIONS (6)
  - HAEMORRHAGE [None]
  - FATIGUE [None]
  - VIRAL RASH [None]
  - ARTHRALGIA [None]
  - MYALGIA [None]
  - ASTHMA [None]
